FAERS Safety Report 17460632 (Version 3)
Quarter: 2020Q1

REPORT INFORMATION
  Report Type: Report from Study
  Country: None (occurrence: US)
  Receive Date: 20200226
  Receipt Date: 20200312
  Transmission Date: 20200409
  Serious: Yes (Other)
  Sender: FDA-Public Use
  Company Number: US-ABBVIE-20P-163-3288137-00

PATIENT
  Sex: Female

DRUGS (2)
  1. IMBRUVICA [Suspect]
     Active Substance: IBRUTINIB
     Indication: CHRONIC LYMPHOCYTIC LEUKAEMIA
     Route: 048
     Dates: start: 20140604
  2. IMBRUVICA [Suspect]
     Active Substance: IBRUTINIB
     Route: 048
     Dates: start: 20140605

REACTIONS (11)
  - Rib fracture [Unknown]
  - Aspiration pleural cavity [Unknown]
  - Dizziness [Unknown]
  - Skin lesion [Unknown]
  - Bipolar disorder [Unknown]
  - Fall [Unknown]
  - Dyspnoea [Unknown]
  - Depressed mood [Unknown]
  - Insomnia [Unknown]
  - Fatigue [Unknown]
  - Balance disorder [Unknown]
